FAERS Safety Report 9651790 (Version 2)
Quarter: 2013Q4

REPORT INFORMATION
  Report Type: Spontaneous
  Country: ES (occurrence: ES)
  Receive Date: 20131029
  Receipt Date: 20131029
  Transmission Date: 20140711
  Serious: Yes (Other)
  Sender: FDA-Public Use
  Company Number: ES-JNJFOC-20130904241

PATIENT
  Age: 30 Year
  Sex: Male
  Weight: 93 kg

DRUGS (3)
  1. REMICADE [Suspect]
     Indication: CROHN^S DISEASE
     Dosage: INDUCTION DOSE
     Route: 042
     Dates: start: 20130807
  2. REMICADE [Suspect]
     Indication: CROHN^S DISEASE
     Dosage: SECOND DOSE
     Route: 042
     Dates: start: 20130903, end: 20130903
  3. AZATHIOPRINE [Concomitant]
     Indication: CROHN^S DISEASE
     Route: 065
     Dates: start: 2011

REACTIONS (8)
  - Tachycardia [Recovered/Resolved]
  - Pyrexia [Recovered/Resolved]
  - Myalgia [Recovered/Resolved]
  - Dyspnoea [Recovered/Resolved]
  - Flushing [Recovered/Resolved]
  - Headache [Recovered/Resolved]
  - Nausea [Recovered/Resolved]
  - Dizziness [Recovered/Resolved]
